FAERS Safety Report 6651604-7 (Version None)
Quarter: 2010Q1

REPORT INFORMATION
  Report Type: 
  Country: None (occurrence: None)
  Receive Date: 20100325
  Receipt Date: 20100312
  Transmission Date: 20100710
  Serious: No
  Sender: FDA-Public Use
  Company Number: US-B.I. PHARMACEUTICALS,INC./RIDGEFIELD-2010-BP-02952BP

PATIENT
  Age: 45 Year
  Sex: Female

DRUGS (5)
  1. SPIRIVA [Suspect]
     Indication: EMPHYSEMA
     Dosage: 18 MCG
     Route: 055
     Dates: start: 20100226
  2. ALBUTEROL [Concomitant]
     Indication: ASTHMA
     Route: 055
     Dates: start: 20100226
  3. ALBUTEROL [Concomitant]
     Indication: EMPHYSEMA
  4. FLOVENT [Concomitant]
     Indication: ASTHMA
     Route: 055
     Dates: start: 20100226
  5. FLOVENT [Concomitant]
     Indication: EMPHYSEMA

REACTIONS (3)
  - ABDOMINAL DISTENSION [None]
  - BACK PAIN [None]
  - DYSPNOEA [None]
